FAERS Safety Report 15507584 (Version 4)
Quarter: 2019Q2

REPORT INFORMATION
  Report Type: Spontaneous
  Country: IT (occurrence: IT)
  Receive Date: 20181016
  Receipt Date: 20190610
  Transmission Date: 20190711
  Serious: Yes (Disabling)
  Sender: FDA-Public Use
  Company Number: IT-ALLERGAN-1848998US

PATIENT
  Sex: Female

DRUGS (10)
  1. PERIDON [Concomitant]
     Active Substance: DOMPERIDONE
     Dosage: 1 DF, QD
     Route: 048
  2. MICROSER [Concomitant]
     Active Substance: BETAHISTINE HYDROCHLORIDE
     Route: 065
  3. FOSTER [Concomitant]
     Active Substance: BECLOMETHASONE\FORMOTEROL
     Indication: ASTHMA
     Dosage: 100/6 MCG PER EROGAZIONE PRESSURIZZATA PER IN
     Route: 065
  4. PEPTAZOL [Concomitant]
     Route: 048
  5. ARCOXIA [Concomitant]
     Active Substance: ETORICOXIB
     Route: 048
  6. DIBASE [Concomitant]
     Active Substance: CHOLECALCIFEROL
     Indication: OSTEOPOROSIS
     Dosage: 25000 KU
     Route: 048
  7. RIOPAN [Concomitant]
     Dosage: 80 MG/ML
     Route: 048
  8. CORDARONE [Concomitant]
     Active Substance: AMIODARONE HYDROCHLORIDE
     Indication: ARRHYTHMIA
     Route: 048
  9. RISEDRONATE SODIUM - BP [Suspect]
     Active Substance: RISEDRONATE SODIUM
     Indication: OSTEOPOROSIS
     Dosage: 35 MG, Q WEEK
     Route: 048
     Dates: start: 20020601, end: 20180628
  10. LEXOTAN [Concomitant]
     Active Substance: BROMAZEPAM
     Indication: ANXIETY
     Route: 065

REACTIONS (3)
  - Gingivitis [Not Recovered/Not Resolved]
  - Osteonecrosis of jaw [Not Recovered/Not Resolved]
  - Oral cavity fistula [Not Recovered/Not Resolved]

NARRATIVE: CASE EVENT DATE: 20180608
